FAERS Safety Report 9719939 (Version 2)
Quarter: 2013Q4

REPORT INFORMATION
  Report Type: Spontaneous
  Country: FR (occurrence: FR)
  Receive Date: 20131128
  Receipt Date: 20131128
  Transmission Date: 20140711
  Serious: Yes (Hospitalization)
  Sender: FDA-Public Use
  Company Number: FR-ASTRAZENECA-2013SE74929

PATIENT
  Age: 584 Month
  Sex: Female
  Weight: 85 kg

DRUGS (5)
  1. SYMBICORT TBH [Suspect]
     Indication: ASTHMA
     Dosage: 160/4.5 UG PER DOSE, ONE INHALATION TWICE PER DAY - LONG RUN TREATMENT
     Route: 055
  2. SYMBICORT TBH [Suspect]
     Indication: ASTHMA
     Dosage: 160/4.5 UG PER DOSE, ONE INHALATION TWICE PER DAY - LONG RUN TREATMENT
     Route: 055
  3. SYMBICORT TBH [Suspect]
     Indication: ASTHMA
     Dosage: 200/6 MCG UNKNOWN
     Route: 055
  4. AERIUS [Concomitant]
     Indication: RHINITIS ALLERGIC
  5. NASONEX [Concomitant]
     Indication: ASTHMA

REACTIONS (2)
  - Dyspnoea exertional [Recovered/Resolved]
  - Circumstance or information capable of leading to device use error [Unknown]
